FAERS Safety Report 6891056-5 (Version None)
Quarter: 2010Q3

REPORT INFORMATION
  Report Type: 
  Country: None (occurrence: None)
  Receive Date: 20100731
  Receipt Date: 20090523
  Transmission Date: 20110219
  Serious: No
  Sender: FDA-Public Use
  Company Number: US-PFIZER INC-2009189236

PATIENT
  Age: 60 Year
  Sex: Female
  Weight: 57.6 kg

DRUGS (2)
  1. LIPITOR [Suspect]
     Indication: BLOOD CHOLESTEROL
     Dosage: 20 MG, 1X/DAY
     Dates: start: 20070101
  2. MULTI-VITAMINS [Concomitant]
     Dosage: UNK

REACTIONS (1)
  - BREAST ENLARGEMENT [None]
